FAERS Safety Report 6145773-5 (Version None)
Quarter: 2009Q2

REPORT INFORMATION
  Report Type: 
  Country: None (occurrence: None)
  Receive Date: 20090406
  Receipt Date: 20090406
  Transmission Date: 20091009
  Serious: Yes (Disabling)
  Sender: FDA-Public Use
  Company Number: None

PATIENT
  Age: 59 Year
  Sex: Female
  Weight: 88.4514 kg

DRUGS (1)
  1. BUPROPION HCL [Suspect]
     Indication: DEPRESSION
     Dosage: 150 MG 1 DAILY

REACTIONS (4)
  - DYSGEUSIA [None]
  - GLOSSODYNIA [None]
  - TONGUE DISORDER [None]
  - URINARY TRACT INFECTION [None]
